FAERS Safety Report 9316293 (Version 1)
Quarter: 2013Q1

REPORT INFORMATION
  Report Type: Spontaneous
  Country: US (occurrence: None)
  Receive Date: 20130109
  Receipt Date: 20130109
  Transmission Date: 20140127
  Serious: Yes (Hospitalization)
  Sender: FDA-Public Use
  Company Number: 139114-1

PATIENT
  Age: 10 Year
  Sex: Male

DRUGS (1)
  1. DAUNORUBICIN [Suspect]
     Indication: ACUTE LYMPHOCYTIC LEUKAEMIA
     Dates: start: 20120804, end: 20120804

REACTIONS (12)
  - Febrile neutropenia [None]
  - Stomatitis [None]
  - Bacteraemia [None]
  - Mucosal infection [None]
  - Convulsion [None]
  - Pulmonary oedema [None]
  - Cardiac failure [None]
  - Hypokalaemia [None]
  - Hypophagia [None]
  - Klebsiella test positive [None]
  - Tachypnoea [None]
  - Weight increased [None]
